FAERS Safety Report 13869640 (Version 1)
Quarter: 2017Q3

REPORT INFORMATION
  Report Type: Spontaneous
  Country: US (occurrence: US)
  Receive Date: 20170815
  Receipt Date: 20170815
  Transmission Date: 20171127
  Serious: Yes (Hospitalization, Other)
  Sender: FDA-Public Use
  Company Number: US-009507513-1706USA009049

PATIENT
  Age: 69 Year
  Sex: Male
  Weight: 82.8 kg

DRUGS (3)
  1. KEYTRUDA [Suspect]
     Active Substance: PEMBROLIZUMAB
     Indication: SQUAMOUS CELL CARCINOMA OF THE TONGUE
     Dosage: 200 MG, EVERY 3 WEEKS, STRENGTH 100MG/4 ML
     Route: 041
     Dates: start: 20170227, end: 20170227
  2. KEYTRUDA [Suspect]
     Active Substance: PEMBROLIZUMAB
     Indication: ORAL CAVITY CANCER METASTATIC
     Dosage: 200 MG, EVERY 3 WEEKS
     Route: 041
     Dates: start: 2017
  3. ACETAMINOPHEN (+) HYDROCODONE BITARTRATE [Concomitant]
     Active Substance: ACETAMINOPHEN\HYDROCODONE BITARTRATE
     Dosage: 5-325 MG TABLETS
     Route: 048

REACTIONS (7)
  - Hypoxia [Unknown]
  - Feeding disorder [Unknown]
  - Diabetic ketoacidosis [Unknown]
  - Metabolic acidosis [Unknown]
  - Rash [Unknown]
  - Pneumothorax [Unknown]
  - Mouth haemorrhage [Recovered/Resolved]

NARRATIVE: CASE EVENT DATE: 2017
